FAERS Safety Report 16112783 (Version 2)
Quarter: 2019Q2

REPORT INFORMATION
  Report Type: Spontaneous
  Country: JP (occurrence: JP)
  Receive Date: 20190325
  Receipt Date: 20190403
  Transmission Date: 20190711
  Serious: Yes (Other)
  Sender: FDA-Public Use
  Company Number: JP-SA-2019SA073480

PATIENT
  Age: 75 Year
  Sex: Female

DRUGS (2)
  1. LEVEMIR [Suspect]
     Active Substance: INSULIN DETEMIR
     Indication: PRODUCT USED FOR UNKNOWN INDICATION
     Dosage: 7 U, QD (BEFORE EVENING MEAL)
     Route: 058
  2. APIDRA SOLOSTAR [Suspect]
     Active Substance: INSULIN GLULISINE
     Indication: PRODUCT USED FOR UNKNOWN INDICATION
     Dosage: 3 UNITS, 3 UNITS AND 5 UNITS (TID)
     Route: 058

REACTIONS (5)
  - Chest discomfort [Unknown]
  - Insomnia [Unknown]
  - Hepatic cancer [Unknown]
  - Breast cancer [Unknown]
  - Blood glucose abnormal [Unknown]
